FAERS Safety Report 6927629-0 (Version None)
Quarter: 2010Q3

REPORT INFORMATION
  Report Type: 
  Country: None (occurrence: None)
  Receive Date: 20100817
  Receipt Date: 20100803
  Transmission Date: 20110219
  Serious: Yes (Hospitalization)
  Sender: FDA-Public Use
  Company Number: PHHY2010US51224

PATIENT
  Age: 58 Year
  Sex: Female

DRUGS (3)
  1. RECLAST [Suspect]
     Indication: OSTEOPOROSIS
  2. AVONEX [Suspect]
     Indication: MULTIPLE SCLEROSIS
     Dosage: 30 MCG WEEKLY
     Route: 030
     Dates: start: 20060608, end: 20060820
  3. AVONEX [Suspect]
     Dosage: 30 MCG WEEKLY
     Route: 030
     Dates: start: 20081024

REACTIONS (6)
  - CIRCULATORY COLLAPSE [None]
  - DEHYDRATION [None]
  - HYPOCALCAEMIA [None]
  - HYPONATRAEMIA [None]
  - POOR VENOUS ACCESS [None]
  - SYSTEMIC LUPUS ERYTHEMATOSUS [None]
